FAERS Safety Report 20808463 (Version 1)
Quarter: 2022Q2

REPORT INFORMATION
  Report Type: Spontaneous
  Country: CN (occurrence: CN)
  Receive Date: 20220510
  Receipt Date: 20220510
  Transmission Date: 20220720
  Serious: Yes (Other)
  Sender: FDA-Public Use
  Company Number: CN-PFIZER INC-202200625620

PATIENT
  Age: 40 Year
  Sex: Female

DRUGS (1)
  1. CELEBREX [Suspect]
     Active Substance: CELECOXIB
     Indication: Pain
     Dosage: 2 DF
     Route: 048

REACTIONS (5)
  - Blood pressure decreased [Unknown]
  - Diarrhoea [Unknown]
  - Feeling cold [Unknown]
  - Nausea [Unknown]
  - Nasopharyngitis [Unknown]
